FAERS Safety Report 20102128 (Version 1)
Quarter: 2021Q4

REPORT INFORMATION
  Report Type: Spontaneous
  Country: US (occurrence: None)
  Receive Date: 20211122
  Receipt Date: 20211122
  Transmission Date: 20220303
  Serious: Yes (Hospitalization)
  Sender: FDA-Public Use
  Company Number: None

PATIENT
  Age: 65 Year
  Sex: Male
  Weight: 94.5 kg

DRUGS (10)
  1. ABIRATERONE [Suspect]
     Active Substance: ABIRATERONE
     Indication: Prostate cancer
     Dosage: FREQUENCY : DAILY;?
     Route: 048
     Dates: start: 20210201
  2. PREDNISONE [Suspect]
     Active Substance: PREDNISONE
     Indication: Prostate cancer
     Dosage: FREQUENCY : DAILY;?
     Route: 048
     Dates: start: 20210201
  3. ASPIRIN [Concomitant]
     Active Substance: ASPIRIN
  4. ATORVASTATIN [Concomitant]
     Active Substance: ATORVASTATIN
  5. CARVEDILOL [Concomitant]
     Active Substance: CARVEDILOL
  6. ELIGARD [Concomitant]
     Active Substance: LEUPROLIDE ACETATE
  7. FUROSEMIDE [Concomitant]
     Active Substance: FUROSEMIDE
  8. LEUPROLIDE [Concomitant]
     Active Substance: LEUPROLIDE
  9. LISINOPRIL [Concomitant]
     Active Substance: LISINOPRIL
  10. PROLIA [Concomitant]
     Active Substance: DENOSUMAB

REACTIONS (3)
  - Gallbladder operation [None]
  - Kidney infection [None]
  - Cardiac failure congestive [None]

NARRATIVE: CASE EVENT DATE: 20211112
